FAERS Safety Report 6498831-X (Version None)
Quarter: 2009Q4

REPORT INFORMATION
  Report Type: 
  Country: None (occurrence: None)
  Receive Date: 20091127
  Receipt Date: 20081027
  Transmission Date: 20100525
  Serious: Yes (Other)
  Sender: FDA-Public Use
  Company Number: WAES 0810USA04871

PATIENT
  Age: 45 Year
  Sex: Female

DRUGS (1)
  1. FOSAMAX [Suspect]
     Indication: OSTEOPOROSIS
     Dosage: 70 MG/PO
     Route: 048
     Dates: start: 20031001, end: 20041201

REACTIONS (12)
  - ABDOMINAL DISCOMFORT [None]
  - ADVERSE DRUG REACTION [None]
  - BACK PAIN [None]
  - BRUXISM [None]
  - JAW DISORDER [None]
  - LYMPHADENOPATHY [None]
  - MALAISE [None]
  - METASTATIC NEOPLASM [None]
  - NAUSEA [None]
  - OSTEOMYELITIS [None]
  - OSTEONECROSIS [None]
  - TEMPOROMANDIBULAR JOINT SYNDROME [None]
